FAERS Safety Report 18210594 (Version 1)
Quarter: 2020Q3

REPORT INFORMATION
  Report Type: Spontaneous
  Country: US (occurrence: US)
  Receive Date: 20200829
  Receipt Date: 20200829
  Transmission Date: 20201103
  Serious: No
  Sender: FDA-Public Use
  Company Number: US-TEVA-2020-US-1819210

PATIENT
  Sex: Female

DRUGS (3)
  1. ALPRAZOLAM TEVA [Suspect]
     Active Substance: ALPRAZOLAM
     Route: 065
  2. GINGER CHEWS [Suspect]
     Active Substance: GINGER
     Route: 065
  3. ZIRTEC [Concomitant]
     Active Substance: CETIRIZINE HYDROCHLORIDE
     Route: 065

REACTIONS (1)
  - Lip swelling [Not Recovered/Not Resolved]
